FAERS Safety Report 10184752 (Version 3)
Quarter: 2014Q3

REPORT INFORMATION
  Report Type: Spontaneous
  Country: IT (occurrence: IT)
  Receive Date: 20140521
  Receipt Date: 20140807
  Transmission Date: 20150326
  Serious: Yes (Death, Other)
  Sender: FDA-Public Use
  Company Number: IT-009507513-1405ITA008869

PATIENT
  Age: 1 Year
  Sex: Female
  Weight: 8 kg

DRUGS (3)
  1. THIOPENTAL SODIUM. [Concomitant]
     Active Substance: THIOPENTAL SODIUM
     Indication: ANAESTHESIA
     Dosage: UNK
     Route: 042
     Dates: start: 20140514, end: 20140514
  2. FENTANEST [Concomitant]
     Active Substance: FENTANYL CITRATE
     Indication: ANAESTHESIA
     Dosage: 0.1MG/2ML STRENGTH
     Route: 042
     Dates: start: 20140514, end: 20140514
  3. ESMERON [Suspect]
     Active Substance: ROCURONIUM BROMIDE
     Indication: ANAESTHESIA
     Dosage: 10 MG/ML INJECTION SOLUTION, 4MG,TOTAL
     Route: 042
     Dates: start: 20140514, end: 20140514

REACTIONS (5)
  - Hypoxia [Fatal]
  - Bradyarrhythmia [Fatal]
  - Cardiac arrest [Fatal]
  - Ventricular tachycardia [Fatal]
  - Obstructive airways disorder [Fatal]

NARRATIVE: CASE EVENT DATE: 20140514
